FAERS Safety Report 7216546-7 (Version None)
Quarter: 2011Q1

REPORT INFORMATION
  Report Type: 
  Country: None (occurrence: None)
  Receive Date: 20110110
  Receipt Date: 20110105
  Transmission Date: 20110831
  Serious: Yes (Death, Hospitalization)
  Sender: FDA-Public Use
  Company Number: IE-AMGEN-IRLSP2010006877

PATIENT

DRUGS (7)
  1. ETANERCEPT [Suspect]
     Indication: TUMOUR NECROSIS FACTOR RECEPTOR-ASSOCIATED PERIODIC SYNDROME
     Dosage: UNK
     Dates: start: 20080101, end: 20100401
  2. ALFACALCIDOL [Concomitant]
     Indication: RENAL OSTEODYSTROPHY
     Dosage: 0.25 UG, UNK
  3. CANAKINUMAB [Suspect]
     Indication: TUMOUR NECROSIS FACTOR RECEPTOR-ASSOCIATED PERIODIC SYNDROME
     Dosage: 150 MG Q4W THEN Q2W
     Route: 058
     Dates: start: 20100511
  4. SEVELAMER [Concomitant]
     Indication: RENAL OSTEODYSTROPHY
     Dosage: 800 MG, UNK
  5. PREDNISOLONE [Suspect]
     Indication: TUMOUR NECROSIS FACTOR RECEPTOR-ASSOCIATED PERIODIC SYNDROME
     Dosage: 20MG / 15MG ALTERNATE DAYS
     Route: 048
     Dates: end: 20100821
  6. PREGABALIN [Concomitant]
     Indication: PAIN
     Dosage: 25 MG, UNK
  7. OXYCONTIN [Concomitant]
     Indication: PAIN
     Dosage: 20 MG, 2X/DAY

REACTIONS (6)
  - SEROSITIS [None]
  - TUBERCULOSIS [None]
  - CARDIAC TAMPONADE [None]
  - CARDIAC AMYLOIDOSIS [None]
  - CARDIAC ARREST [None]
  - TUMOUR NECROSIS FACTOR RECEPTOR-ASSOCIATED PERIODIC SYNDROME [None]
